FAERS Safety Report 14375891 (Version 1)
Quarter: 2018Q1

REPORT INFORMATION
  Report Type: Spontaneous
  Country: US (occurrence: US)
  Receive Date: 20180109
  Receipt Date: 20180109
  Transmission Date: 20180509
  Serious: Yes (Other)
  Sender: FDA-Public Use
  Company Number: None

PATIENT
  Sex: Female
  Weight: 72 kg

DRUGS (8)
  1. METFORMIN [Concomitant]
     Active Substance: METFORMIN HYDROCHLORIDE
  2. VITAMIN D [Concomitant]
     Active Substance: CHOLECALCIFEROL
  3. SOLARAY [Concomitant]
  4. METHYLISOTHIAZOLINONE (CONJUCATED ESTROGEN) [Suspect]
     Active Substance: METHYLISOTHIAZOLINONE
  5. PREMARIN [Concomitant]
     Active Substance: ESTROGENS, CONJUGATED
  6. ESTROGEN CREAM IN VERSABASE [Suspect]
     Active Substance: ESTRADIOL
     Indication: VAGINAL INFECTION
     Dosage: ?          OTHER FREQUENCY:TWICE A WEEK;?
     Route: 067
  7. COMPOUNDED BIO-IDENTIAL ESTROGEN [Concomitant]
  8. MULTIDOPHILUS [Concomitant]

REACTIONS (4)
  - Disease recurrence [None]
  - Drug effect incomplete [None]
  - Condition aggravated [None]
  - Vaginal infection [None]

NARRATIVE: CASE EVENT DATE: 20180105
